FAERS Safety Report 5085930-2 (Version None)
Quarter: 2006Q3

REPORT INFORMATION
  Report Type: 
  Country: None (occurrence: None)
  Receive Date: 20060817
  Receipt Date: 20060803
  Transmission Date: 20061208
  Serious: Yes (Hospitalization)
  Sender: FDA-Public Use
  Company Number: 2006075333

PATIENT
  Age: 58 Year
  Sex: Male
  Weight: 117 kg

DRUGS (7)
  1. SUTENT [Suspect]
     Indication: METASTATIC RENAL CELL CARCINOMA
     Dosage: 50 MG (50 MG, INTERVAL:  4 WEEKS ON 2 OFF). ORAL
     Route: 048
     Dates: start: 20060412
  2. LOSARTAN POTASSIUM [Concomitant]
  3. ATENOLOL [Concomitant]
  4. ESCITALOPRAM OXALATE [Concomitant]
  5. OMEPRAZOLE [Concomitant]
  6. DIAZEPAM [Concomitant]
  7. DICLOFENAC SODIUM [Concomitant]

REACTIONS (16)
  - ANAL ULCER [None]
  - BACTERIAL INFECTION [None]
  - CONFUSIONAL STATE [None]
  - CREPITATIONS [None]
  - ESCHERICHIA INFECTION [None]
  - FLUID INTAKE REDUCED [None]
  - HYPOTENSION [None]
  - HYPOXIA [None]
  - METABOLIC ACIDOSIS [None]
  - MUCOSAL INFLAMMATION [None]
  - NECROTISING FASCIITIS [None]
  - PURULENT DISCHARGE [None]
  - RESPIRATORY FAILURE [None]
  - SEPTIC SHOCK [None]
  - SKIN EXFOLIATION [None]
  - STOMATITIS [None]
